FAERS Safety Report 12420867 (Version 1)
Quarter: 2016Q2

REPORT INFORMATION
  Report Type: Spontaneous
  Country: GB (occurrence: GB)
  Receive Date: 20160531
  Receipt Date: 20160531
  Transmission Date: 20160815
  Serious: Yes (Life-Threatening, Hospitalization, Other)
  Sender: FDA-Public Use
  Company Number: GB-009507513-1605GBR013418

PATIENT
  Sex: Female

DRUGS (4)
  1. ALDOMET [Concomitant]
     Active Substance: METHYLDOPA
     Dosage: 2 G, QD
     Route: 064
  2. LABETALOL [Concomitant]
     Active Substance: LABETALOL\LABETALOL HYDROCHLORIDE
     Dosage: 1200 MG, QD
     Route: 064
  3. LISINOPRIL. [Suspect]
     Active Substance: LISINOPRIL
     Dosage: 30 MG, UNK
     Route: 064
  4. NIFEDIPINE. [Concomitant]
     Active Substance: NIFEDIPINE
     Dosage: 40 MG, QD
     Route: 064

REACTIONS (7)
  - Hypoxia [Recovered/Resolved]
  - Neonatal respiratory distress syndrome [Recovered/Resolved]
  - Diarrhoea [Recovered/Resolved]
  - Premature baby [Recovered/Resolved]
  - Necrotising colitis [Recovered/Resolved]
  - Renal failure [Recovered/Resolved]
  - Foetal exposure during pregnancy [Recovered/Resolved]
